FAERS Safety Report 10198211 (Version 1)
Quarter: 2014Q2

REPORT INFORMATION
  Report Type: Spontaneous
  Country: US (occurrence: US)
  Receive Date: 20140527
  Receipt Date: 20140527
  Transmission Date: 20141212
  Serious: No
  Sender: FDA-Public Use
  Company Number: US-TEVA-482199USA

PATIENT
  Sex: Female
  Weight: 47.22 kg

DRUGS (11)
  1. PROAIR HFA [Suspect]
     Indication: PROPHYLAXIS AGAINST BRONCHOSPASM
     Route: 055
  2. PRAVASTATIN [Concomitant]
     Indication: HYPERCHOLESTEROLAEMIA
  3. LEVOTHYROXINE [Concomitant]
     Indication: HYPOTHYROIDISM
  4. AMLODIPINE [Concomitant]
     Indication: HYPERTENSION
  5. TRAZODONE [Concomitant]
     Indication: SLEEP DISORDER
  6. ALPRAZOLAM [Concomitant]
     Indication: ANXIETY
  7. ALPRAZOLAM [Concomitant]
     Indication: SLEEP DISORDER
  8. RECLAST [Concomitant]
     Indication: OSTEOPOROSIS
  9. SPIRIVA [Concomitant]
     Indication: EMPHYSEMA
  10. SYMBICORT [Concomitant]
     Indication: EMPHYSEMA
  11. VITAMINS [Concomitant]
     Indication: VITAMIN SUPPLEMENTATION

REACTIONS (2)
  - Fatigue [Not Recovered/Not Resolved]
  - Chest discomfort [Not Recovered/Not Resolved]
